FAERS Safety Report 8205469-2 (Version None)
Quarter: 2012Q1

REPORT INFORMATION
  Report Type: 
  Country: None (occurrence: None)
  Receive Date: 20120313
  Receipt Date: 20120301
  Transmission Date: 20120608
  Serious: Yes (Other)
  Sender: FDA-Public Use
  Company Number: DE-BRISTOL-MYERS SQUIBB COMPANY-16429052

PATIENT

DRUGS (2)
  1. HALDOL [Suspect]
  2. ABILIFY [Suspect]
     Dosage: REDUCED TO 25MG

REACTIONS (1)
  - PSYCHOTIC DISORDER [None]
